FAERS Safety Report 5922160-3 (Version None)
Quarter: 2008Q4

REPORT INFORMATION
  Report Type: 
  Country: None (occurrence: None)
  Receive Date: 20081014
  Receipt Date: 20081007
  Transmission Date: 20090506
  Serious: Yes (Other)
  Sender: FDA-Public Use
  Company Number: 2008BI022916

PATIENT
  Age: 47 Year
  Sex: Female

DRUGS (3)
  1. TYSABRI [Suspect]
     Indication: MULTIPLE SCLEROSIS
     Dosage: 300 MG; QM; IV, 300 MG; QM; IV
     Route: 042
     Dates: start: 20050204, end: 20050101
  2. TYSABRI [Suspect]
     Indication: MULTIPLE SCLEROSIS
     Dosage: 300 MG; QM; IV, 300 MG; QM; IV
     Route: 042
     Dates: start: 20070123
  3. RECLAST [Concomitant]

REACTIONS (5)
  - HYPERHIDROSIS [None]
  - HYPOPHAGIA [None]
  - INFUSION RELATED REACTION [None]
  - PYREXIA [None]
  - RENAL FAILURE [None]
